FAERS Safety Report 6823870-6 (Version None)
Quarter: 2010Q3

REPORT INFORMATION
  Report Type: 
  Country: None (occurrence: None)
  Receive Date: 20100708
  Receipt Date: 20060927
  Transmission Date: 20110219
  Serious: No
  Sender: FDA-Public Use
  Company Number: US-PFIZER INC-2006113459

PATIENT
  Sex: Female
  Weight: 63.5 kg

DRUGS (5)
  1. CHANTIX [Suspect]
     Indication: SMOKING CESSATION THERAPY
     Dates: start: 20060902
  2. EFFEXOR XR [Concomitant]
     Indication: DEPRESSION
  3. EFFEXOR XR [Concomitant]
     Indication: ANXIETY
  4. TRILEPTAL [Concomitant]
  5. PROTONIX [Concomitant]

REACTIONS (3)
  - FLATULENCE [None]
  - HEADACHE [None]
  - NAUSEA [None]
